FAERS Safety Report 8583272-1 (Version None)
Quarter: 2012Q3

REPORT INFORMATION
  Report Type: 
  Country: None (occurrence: None)
  Receive Date: 20120809
  Receipt Date: 20120802
  Transmission Date: 20120928
  Serious: Yes (Hospitalization)
  Sender: FDA-Public Use
  Company Number: US-ABBOTT-12P-163-0964353-00

PATIENT
  Sex: Female
  Weight: 58.566 kg

DRUGS (6)
  1. HUMIRA [Suspect]
     Dosage: (80 MG, SECOND LOADING DOSE)
     Dates: start: 20100101, end: 20100101
  2. HUMIRA [Suspect]
     Indication: CROHN'S DISEASE
     Dates: start: 20120725, end: 20120725
  3. HUMIRA [Suspect]
     Indication: CROHN'S DISEASE
     Dosage: (160 MG, LOADING DOSE)
     Dates: start: 20100801, end: 20100801
  4. EFFEXOR [Concomitant]
     Indication: DEPRESSION
  5. HUMIRA [Suspect]
     Dates: start: 20120802
  6. HUMIRA [Suspect]
     Dates: end: 20110801

REACTIONS (4)
  - CONDITION AGGRAVATED [None]
  - ABDOMINAL PAIN [None]
  - DIARRHOEA [None]
  - LARGE INTESTINAL OBSTRUCTION [None]
